FAERS Safety Report 13151433 (Version 1)
Quarter: 2017Q1

REPORT INFORMATION
  Report Type: Spontaneous
  Country: US (occurrence: US)
  Receive Date: 20170125
  Receipt Date: 20170125
  Transmission Date: 20170428
  Serious: No
  Sender: FDA-Public Use
  Company Number: US-KADMON PHARMACEUTICALS, LLC-KAD201603-001144

PATIENT
  Sex: Female

DRUGS (2)
  1. RIBAVIRIN. [Suspect]
     Active Substance: RIBAVIRIN
     Indication: HEPATITIS C
     Dosage: THREE TABLETS IN MORNING AND TWO TABLET IN EVENING
     Route: 048
  2. VIEKIRA PAK [Suspect]
     Active Substance: DASABUVIR\OMBITASVIR\PARITAPREVIR\RITONAVIR
     Indication: HEPATITIS C
     Dosage: THREE TABLETS IN MORNING AND ONE TABLET IN EVENING
     Route: 048

REACTIONS (12)
  - Chills [Unknown]
  - Anxiety [Unknown]
  - Fatigue [Unknown]
  - Memory impairment [Unknown]
  - Impaired work ability [Unknown]
  - Nausea [Unknown]
  - Rash [Unknown]
  - Anaemia [Unknown]
  - Depression [Unknown]
  - Diarrhoea [Unknown]
  - Constipation [Unknown]
  - Confusional state [Unknown]
